FAERS Safety Report 5522092-9 (Version None)
Quarter: 2008Q1

REPORT INFORMATION
  Report Type: 
  Country: None (occurrence: None)
  Receive Date: 20071120
  Receipt Date: 20071105
  Transmission Date: 20080703
  Serious: Yes (Other)
  Sender: FDA-Public Use
  Company Number: CA-ROCHE-529910

PATIENT
  Age: 32 Year
  Sex: Female

DRUGS (3)
  1. MEFLOQUINE HYDROCHLORIDE [Suspect]
     Indication: DRUG USE FOR UNKNOWN INDICATION
     Route: 065
  2. 1 DRUG SUSPECTED [Suspect]
     Indication: DRUG USE FOR UNKNOWN INDICATION
     Dosage: FREQUENCY REPORTED: FIRST DOSE
     Route: 030
  3. FANSIDAR [Concomitant]

REACTIONS (2)
  - CONVULSION [None]
  - HYPOTONIA [None]
